FAERS Safety Report 13155087 (Version 1)
Quarter: 2017Q1

REPORT INFORMATION
  Report Type: Spontaneous
  Country: US (occurrence: US)
  Receive Date: 20170126
  Receipt Date: 20170126
  Transmission Date: 20170428
  Serious: No
  Sender: FDA-Public Use
  Company Number: US-PFIZER INC-2017032058

PATIENT
  Age: 75 Year
  Sex: Female
  Weight: 88.9 kg

DRUGS (1)
  1. IBRANCE [Suspect]
     Active Substance: PALBOCICLIB
     Indication: BREAST CANCER
     Dosage: 125 MG, CYCLIC (1D-21D Q28D)
     Route: 048
     Dates: start: 20170106

REACTIONS (2)
  - Diarrhoea [Unknown]
  - Hot flush [Unknown]
